FAERS Safety Report 14194457 (Version 1)
Quarter: 2017Q4

REPORT INFORMATION
  Report Type: Spontaneous
  Country: US (occurrence: US)
  Receive Date: 20171115
  Receipt Date: 20171115
  Transmission Date: 20180321
  Serious: Yes (Life-Threatening, Other)
  Sender: FDA-Public Use
  Company Number: None

PATIENT
  Age: 63 Year
  Sex: Male
  Weight: 107 kg

DRUGS (1)
  1. IRRISEPT STEP 1 [Suspect]
     Active Substance: CHLORHEXIDINE
     Indication: THERAPEUTIC PROCEDURE
     Dosage: ?          OTHER FREQUENCY:ONCE;OTHER ROUTE:IRRIGATION?
     Dates: start: 20171107, end: 20171107

REACTIONS (4)
  - Blood pressure decreased [None]
  - Heart rate decreased [None]
  - Product label issue [None]
  - Product formulation issue [None]

NARRATIVE: CASE EVENT DATE: 20171107
